FAERS Safety Report 5203888-X (Version None)
Quarter: 2007Q1

REPORT INFORMATION
  Report Type: 
  Country: None (occurrence: None)
  Receive Date: 20070110
  Receipt Date: 20070103
  Transmission Date: 20070707
  Serious: Yes (Hospitalization)
  Sender: FDA-Public Use
  Company Number: ZA-BRISTOL-MYERS SQUIBB COMPANY-13605126

PATIENT
  Age: 59 Year
  Sex: Female

DRUGS (6)
  1. ABATACEPT [Suspect]
     Indication: RHEUMATOID ARTHRITIS
     Route: 042
     Dates: start: 20060510
  2. METHOTREXATE [Suspect]
     Indication: RHEUMATOID ARTHRITIS
     Route: 048
     Dates: start: 20041203
  3. BLINDED: PLACEBO [Suspect]
     Route: 042
     Dates: start: 20060510
  4. PREDNISONE TAB [Concomitant]
     Dates: start: 20020704
  5. FOLIC ACID [Concomitant]
     Dates: start: 20041203
  6. VELTEX [Concomitant]
     Dates: start: 20050301

REACTIONS (1)
  - LUMBAR SPINAL STENOSIS [None]
